FAERS Safety Report 9176124 (Version 1)
Quarter: 2012Q4

REPORT INFORMATION
  Report Type: 
  Country: FR (occurrence: FR)
  Receive Date: 20120921
  Receipt Date: 20120921
  Transmission Date: 20130627
  Serious: Yes (Other)
  Sender: FDA-Public Use
  Company Number: FR-RB-044695-12

PATIENT
  Age: 40 Year
  Sex: Male

DRUGS (2)
  1. SUBUTEX [Suspect]
     Indication: PRODUCT USED FOR UNKNOWN INDICATION
     Route: 042
  2. SUBUTEX [Suspect]
     Route: 065
     Dates: start: 2002

REACTIONS (3)
  - Thrombophlebitis [Unknown]
  - Incorrect route of drug administration [Unknown]
  - Prescribed overdose [Unknown]
